FAERS Safety Report 5741434-2 (Version None)
Quarter: 2008Q2

REPORT INFORMATION
  Report Type: 
  Country: None (occurrence: None)
  Receive Date: 20080514
  Receipt Date: 20080429
  Transmission Date: 20081010
  Serious: Yes (Death)
  Sender: FDA-Public Use
  Company Number: 000840

PATIENT
  Age: 75 Year
  Sex: Male

DRUGS (1)
  1. PLETAL [Suspect]
     Dosage: 100 MG, ORAL
     Route: 048

REACTIONS (1)
  - VASCULAR GRAFT [None]
